FAERS Safety Report 4672603-0 (Version None)
Quarter: 2005Q2

REPORT INFORMATION
  Report Type: 
  Country: None (occurrence: None)
  Receive Date: 20050524
  Receipt Date: 20050512
  Transmission Date: 20051028
  Serious: Yes (Hospitalization)
  Sender: FDA-Public Use
  Company Number: HCM-0071

PATIENT
  Age: 76 Year
  Sex: Male

DRUGS (6)
  1. HYCAMTIN [Suspect]
     Route: 042
     Dates: start: 20030521, end: 20030703
  2. CARBOPLATIN [Concomitant]
  3. ETOPOSIDE [Concomitant]
  4. CISPLATIN [Concomitant]
  5. IRINOTECAN HCL [Concomitant]
  6. UNKNOWN CANCER THERAPY DRUG [Concomitant]

REACTIONS (5)
  - BLOOD ELECTROLYTES ABNORMAL [None]
  - HYPOALBUMINAEMIA [None]
  - HYPOPROTEINAEMIA [None]
  - LEUKOCYTOSIS [None]
  - WHITE BLOOD CELL COUNT DECREASED [None]
